FAERS Safety Report 7569330-9 (Version None)
Quarter: 2011Q2

REPORT INFORMATION
  Report Type: 
  Country: None (occurrence: None)
  Receive Date: 20110623
  Receipt Date: 20110617
  Transmission Date: 20111010
  Serious: Yes (Other)
  Sender: FDA-Public Use
  Company Number: BR-ABBOTT-09P-020-0605288-00

PATIENT
  Sex: Female
  Weight: 85 kg

DRUGS (19)
  1. PREDNISONE [Concomitant]
     Route: 048
  2. HUMIRA [Suspect]
     Indication: RHEUMATOID ARTHRITIS
     Route: 058
     Dates: start: 20090801
  3. OMEPRAZOLE [Concomitant]
     Indication: GASTRIC DISORDER
     Route: 048
  4. EUTIROX [Concomitant]
     Indication: HYPOTHYROIDISM
     Route: 048
  5. ENOXAPARIN SODIUM [Concomitant]
     Indication: THROMBOSIS PROPHYLAXIS
     Route: 058
     Dates: start: 20100813
  6. CALCIUM CARBONATE [Concomitant]
     Indication: BONE DISORDER
     Route: 048
  7. PREDNISONE [Concomitant]
     Indication: ARTHRALGIA
     Route: 048
  8. ERITROPOYETINE [Concomitant]
     Indication: ANAEMIA
     Route: 065
     Dates: start: 20090801
  9. FOLIC ACID [Concomitant]
     Indication: ANAEMIA
     Route: 048
  10. LEUCOVORIN CALCIUM [Concomitant]
     Indication: ANAEMIA
     Route: 048
  11. FLUOXETINE HCL [Concomitant]
     Indication: ANXIETY
  12. CARBAMAZEPINE [Concomitant]
     Indication: EPILEPSY
     Route: 048
  13. METAMIZOLE [Concomitant]
     Indication: PAIN
     Dosage: 40 DROPS EACH 6 HOURS
     Route: 048
  14. LEVOTHYROXINE SODIUM [Concomitant]
     Indication: HYPOTHYROIDISM
     Route: 048
  15. CALCIUM CARBONATE [Concomitant]
     Indication: BONE DISORDER
  16. METHOTREXATE [Suspect]
     Indication: PAIN
  17. OMEPRAZOLE [Concomitant]
     Indication: PAIN
  18. DIPYRONE [Concomitant]
     Indication: PAIN
     Dosage: 40 DROPS EVERY 6 HOURS
     Route: 048
  19. PRIMIDONE [Concomitant]
     Indication: PAIN

REACTIONS (9)
  - BONE EROSION [None]
  - ANXIETY [None]
  - WEIGHT INCREASED [None]
  - SWELLING [None]
  - WEIGHT DECREASED [None]
  - ANAEMIA [None]
  - ARTHROPATHY [None]
  - APPLICATION SITE PAIN [None]
  - ARTHRALGIA [None]
